FAERS Safety Report 5942782-3 (Version None)
Quarter: 2008Q4

REPORT INFORMATION
  Report Type: 
  Country: None (occurrence: None)
  Receive Date: 20081106
  Receipt Date: 20081031
  Transmission Date: 20090506
  Serious: Yes (Hospitalization, Other)
  Sender: FDA-Public Use
  Company Number: BR-JNJFOC-20081004617

PATIENT
  Age: 51 Year
  Sex: Female
  Weight: 24.49 kg

DRUGS (12)
  1. DURAGESIC-100 [Suspect]
     Route: 062
  2. DURAGESIC-100 [Suspect]
     Route: 062
  3. DURAGESIC-100 [Suspect]
     Indication: PAIN
     Route: 062
  4. DURAGESIC-100 [Suspect]
     Indication: PAIN
     Route: 062
  5. CAPTOPRIL [Concomitant]
     Indication: BLOOD PRESSURE
     Dosage: HALF TABLET OF 25 MG IN THE MORNING AND AT NIGHT
     Route: 065
  6. HYDROCHLOROTHIAZIDE [Concomitant]
     Indication: DIURETIC THERAPY
     Dosage: IN MORNING
     Route: 065
  7. FRONTAL [Concomitant]
     Indication: DEPRESSION
     Dosage: ONE TABLET AT 7:00 AND ONE TABLET AT 16:00
     Route: 065
  8. AMITRIPTYLINE HCL [Concomitant]
     Route: 065
  9. OMEPRAZOLE [Concomitant]
     Indication: NAUSEA
     Dosage: IN MORNING
     Route: 065
  10. ACETAMINOPHEN [Concomitant]
     Indication: PAIN
     Route: 065
  11. TRAMADOL HCL [Concomitant]
     Indication: PAIN
     Route: 065
  12. AMOXICILLIN [Concomitant]
     Indication: DENTAL OPERATION
     Route: 065

REACTIONS (14)
  - ARRHYTHMIA [None]
  - ASTHENIA [None]
  - BLOOD PRESSURE DECREASED [None]
  - DENTAL OPERATION [None]
  - DRUG INEFFECTIVE [None]
  - DYSPNOEA [None]
  - DYSSTASIA [None]
  - FALL [None]
  - HEART RATE INCREASED [None]
  - MALAISE [None]
  - PULMONARY VALVE INCOMPETENCE [None]
  - SKIN DISCOLOURATION [None]
  - SOMNOLENCE [None]
  - TEMPERATURE REGULATION DISORDER [None]
